FAERS Safety Report 14073583 (Version 1)
Quarter: 2017Q4

REPORT INFORMATION
  Report Type: Spontaneous
  Country: CH (occurrence: CH)
  Receive Date: 20171011
  Receipt Date: 20171011
  Transmission Date: 20180321
  Serious: Yes (Hospitalization)
  Sender: FDA-Public Use
  Company Number: CH-TEVA-813394ISR

PATIENT
  Age: 14 Year
  Sex: Male
  Weight: 40 kg

DRUGS (12)
  1. TRIMETHOPRIM/SULFAMETHOXAZOLE [Suspect]
     Active Substance: SULFAMETHOXAZOLE\TRIMETHOPRIM
     Dates: start: 20170811, end: 20170914
  2. VINCRISTINE-TEVA [Suspect]
     Active Substance: VINCRISTINE
     Dates: start: 20170818, end: 20170908
  3. ONCASPAR [Suspect]
     Active Substance: PEGASPARGASE
     Dates: start: 20170812, end: 20170905
  4. DAUNOBLASTIN [Suspect]
     Active Substance: DAUNORUBICIN HYDROCHLORIDE
     Dates: start: 20170818, end: 20170908
  5. ALLOPURINOL. [Concomitant]
     Active Substance: ALLOPURINOL
     Dates: start: 20170809, end: 20170818
  6. FUROSEMID [Concomitant]
     Active Substance: FUROSEMIDE
     Dates: start: 20170809, end: 20170812
  7. VITAMIN K [Concomitant]
     Active Substance: PHYTONADIONE
     Dates: start: 20170809, end: 20170811
  8. ESOMEP [Suspect]
     Active Substance: ESOMEPRAZOLE
     Route: 048
     Dates: start: 20170810
  9. PREDNISON [Concomitant]
     Active Substance: PREDNISONE
     Route: 048
     Dates: start: 20170811
  10. METHOTREXATE. [Suspect]
     Active Substance: METHOTREXATE
     Route: 037
     Dates: start: 20170813, end: 20170912
  11. PREDNISON [Concomitant]
     Active Substance: PREDNISONE
     Route: 041
     Dates: start: 20170811, end: 20170908
  12. PARACETAMOL [Concomitant]
     Active Substance: ACETAMINOPHEN
     Dates: start: 20170811, end: 20170813

REACTIONS (1)
  - Drug-induced liver injury [Not Recovered/Not Resolved]

NARRATIVE: CASE EVENT DATE: 20170914
